FAERS Safety Report 5923853-4 (Version None)
Quarter: 2008Q4

REPORT INFORMATION
  Report Type: 
  Country: None (occurrence: None)
  Receive Date: 20081020
  Receipt Date: 20081008
  Transmission Date: 20090506
  Serious: Yes (Hospitalization)
  Sender: FDA-Public Use
  Company Number: ES-ROCHE-590647

PATIENT
  Age: 57 Year
  Sex: Male

DRUGS (4)
  1. CAPECITABINE [Interacting]
     Dosage: FORM: FILM COATED TABLETS
     Route: 065
     Dates: start: 20080510, end: 20080515
  2. FLUOROURACIL [Interacting]
     Indication: DRUG USE FOR UNKNOWN INDICATION
     Route: 065
     Dates: start: 20080501, end: 20080501
  3. OXALIPLATIN [Suspect]
     Indication: DRUG USE FOR UNKNOWN INDICATION
     Route: 065
     Dates: start: 20080501, end: 20080501
  4. FOLINIC ACID [Interacting]
     Indication: DRUG USE FOR UNKNOWN INDICATION
     Route: 065
     Dates: start: 20080501, end: 20080501

REACTIONS (2)
  - DRUG INTERACTION [None]
  - NEUTROPENIA [None]
